FAERS Safety Report 4725559-6 (Version None)
Quarter: 2005Q3

REPORT INFORMATION
  Report Type: 
  Country: None (occurrence: None)
  Receive Date: 20050725
  Receipt Date: 20050715
  Transmission Date: 20060218
  Serious: Yes (Hospitalization)
  Sender: FDA-Public Use
  Company Number: KII-2005-0017618

PATIENT
  Age: 67 Year
  Sex: Female

DRUGS (3)
  1. MORPHINE SULFATE [Suspect]
     Dosage: ORAL
     Route: 048
  2. ATROPINE W/DIPHENOXYLATE (ATROPINE SULFATE, DIPHENOXYLATE HYDROCHLORID [Suspect]
     Dosage: ORAL
     Route: 048
  3. HYPNOTICS AND SEDATIVES () [Suspect]
     Dosage: SEE TEXT, ORAL
     Route: 048

REACTIONS (5)
  - INTENTIONAL MISUSE [None]
  - LETHARGY [None]
  - LUNG INFILTRATION [None]
  - MULTIPLE DRUG OVERDOSE [None]
  - URINARY TRACT INFECTION [None]
